FAERS Safety Report 5816979-7 (Version None)
Quarter: 2008Q3

REPORT INFORMATION
  Report Type: 
  Country: None (occurrence: None)
  Receive Date: 20080722
  Receipt Date: 20080715
  Transmission Date: 20090109
  Serious: Yes (Hospitalization)
  Sender: FDA-Public Use
  Company Number: FR-JNJFOC-20080703594

PATIENT
  Sex: Female

DRUGS (3)
  1. RISPERDAL [Suspect]
     Indication: MOOD ALTERED
     Route: 048
  2. TEGRETOL [Suspect]
     Indication: MOOD ALTERED
     Route: 048
  3. TERCIAN [Suspect]
     Indication: ANXIETY
     Route: 048

REACTIONS (8)
  - CYTOLYTIC HEPATITIS [None]
  - DRUG RASH WITH EOSINOPHILIA AND SYSTEMIC SYMPTOMS [None]
  - EOSINOPHILIA [None]
  - FACE OEDEMA [None]
  - GENERAL PHYSICAL HEALTH DETERIORATION [None]
  - HEPATOMEGALY [None]
  - MONONUCLEOSIS SYNDROME [None]
  - MOUTH ULCERATION [None]
